FAERS Safety Report 23598299 (Version 1)
Quarter: 2024Q1

REPORT INFORMATION
  Report Type: Report from Study
  Country: NL (occurrence: NL)
  Receive Date: 20240305
  Receipt Date: 20240305
  Transmission Date: 20240410
  Serious: Yes (Death)
  Sender: FDA-Public Use
  Company Number: NL-ABBVIE-5666062

PATIENT
  Sex: Female

DRUGS (3)
  1. CARBIDOPA\LEVODOPA [Suspect]
     Active Substance: CARBIDOPA\LEVODOPA
     Indication: Parkinson^s disease
     Dosage: MD: 8.5 ML, CD: 6.7 ML/H, ED: 2.5 ML, CND: 3.8 ML/H, END: 2.0 ML
     Route: 050
     Dates: start: 20230831, end: 20231120
  2. CARBIDOPA\LEVODOPA [Suspect]
     Active Substance: CARBIDOPA\LEVODOPA
     Dosage: MD: 8.5 ML, CD: 6.5 ML/H, ED: 2.5 ML,?DURATION TEXT: REMAINS AT 24 HOURS
     Route: 050
     Dates: start: 20231120
  3. CARBIDOPA\LEVODOPA [Suspect]
     Active Substance: CARBIDOPA\LEVODOPA
     Route: 050
     Dates: start: 20160926

REACTIONS (1)
  - Death [Fatal]

NARRATIVE: CASE EVENT DATE: 20240304
